FAERS Safety Report 7066597-0 (Version None)
Quarter: 2010Q4

REPORT INFORMATION
  Report Type: 
  Country: None (occurrence: None)
  Receive Date: 20101027
  Receipt Date: 20100617
  Transmission Date: 20110411
  Serious: No
  Sender: FDA-Public Use
  Company Number: US-WYE-H16085210

PATIENT
  Sex: Female
  Weight: 55.84 kg

DRUGS (3)
  1. PREMPRO [Suspect]
     Indication: SLEEP DISORDER
     Dosage: 0.6 MG DAILY
     Route: 048
     Dates: start: 19980101, end: 20030101
  2. PREMPRO [Suspect]
     Dosage: YELLOW 0.3MG DAILY
     Route: 048
     Dates: start: 20040101
  3. SYNTHROID [Concomitant]

REACTIONS (3)
  - DRUG DOSE OMISSION [None]
  - INSOMNIA [None]
  - OFF LABEL USE [None]
